FAERS Safety Report 18220906 (Version 1)
Quarter: 2020Q3

REPORT INFORMATION
  Report Type: Spontaneous
  Country: US (occurrence: US)
  Receive Date: 20200902
  Receipt Date: 20200902
  Transmission Date: 20201103
  Serious: Yes (Death, Other)
  Sender: FDA-Public Use
  Company Number: US-ALKEM LABORATORIES LIMITED-US-ALKEM-2020-05397

PATIENT
  Age: 57 Year
  Sex: Male

DRUGS (3)
  1. PREDNISONE. [Suspect]
     Active Substance: PREDNISONE
     Indication: IMMUNOSUPPRESSION
     Dosage: 5 MILLIGRAM, QD
     Route: 065
  2. MYCOPHENOLATE MOFETIL. [Suspect]
     Active Substance: MYCOPHENOLATE MOFETIL
     Indication: IMMUNOSUPPRESSION
     Dosage: 1 GRAM, BID
     Route: 065
  3. TACROLIMUS. [Suspect]
     Active Substance: TACROLIMUS
     Indication: IMMUNOSUPPRESSION
     Dosage: 1 MILLIGRAM, BID
     Route: 065

REACTIONS (7)
  - Hypercalcaemia [Unknown]
  - Post transplant lymphoproliferative disorder [Unknown]
  - Respiratory failure [Fatal]
  - Renal failure [Unknown]
  - Hepatosplenomegaly [Unknown]
  - Epstein-Barr virus test positive [Unknown]
  - Sciatica [Unknown]
